FAERS Safety Report 4667429-8 (Version None)
Quarter: 2005Q2

REPORT INFORMATION
  Report Type: 
  Country: None (occurrence: None)
  Receive Date: 20050518
  Receipt Date: 20050203
  Transmission Date: 20051028
  Serious: Yes (Hospitalization)
  Sender: FDA-Public Use
  Company Number: 2005-00447

PATIENT
  Age: 63 Year
  Sex: Female
  Weight: 32.5 kg

DRUGS (7)
  1. INFED [Suspect]
     Indication: IRON DEFICIENCY ANAEMIA
     Dosage: 6.7 MG INFUSED OVER 4 MINUTES, INTRAVENOUS
     Route: 042
     Dates: start: 20050203, end: 20050203
  2. CARDIZEM CD [Concomitant]
  3. LASIX [Concomitant]
  4. PAXIL [Concomitant]
  5. INSULIN [Concomitant]
  6. LIPITOR [Concomitant]
  7. FOSAMAX [Concomitant]

REACTIONS (4)
  - ANAPHYLACTIC SHOCK [None]
  - CHEST DISCOMFORT [None]
  - DYSPNOEA [None]
  - HYPOTENSION [None]
